FAERS Safety Report 10431861 (Version 4)
Quarter: 2014Q4

REPORT INFORMATION
  Report Type: Spontaneous
  Country: US (occurrence: US)
  Receive Date: 20140905
  Receipt Date: 20141008
  Transmission Date: 20150528
  Serious: Yes (Other)
  Sender: FDA-Public Use
  Company Number: US-ROCHE-1456865

PATIENT
  Sex: Female

DRUGS (3)
  1. LUCENTIS [Suspect]
     Active Substance: RANIBIZUMAB
     Dosage: ONCE IN EACH EYE
     Route: 050
     Dates: start: 201407
  2. LUCENTIS [Suspect]
     Active Substance: RANIBIZUMAB
     Route: 050
     Dates: start: 201408
  3. LUCENTIS [Suspect]
     Active Substance: RANIBIZUMAB
     Indication: DIABETIC RETINAL OEDEMA
     Route: 050
     Dates: start: 201404

REACTIONS (6)
  - Cataract [Recovering/Resolving]
  - Vitreous haemorrhage [Not Recovered/Not Resolved]
  - Visual acuity reduced [Unknown]
  - Eye haemorrhage [Not Recovered/Not Resolved]
  - Drug effect incomplete [Unknown]
  - Inappropriate schedule of drug administration [Unknown]
